FAERS Safety Report 15948125 (Version 1)
Quarter: 2019Q1

REPORT INFORMATION
  Report Type: Spontaneous
  Country: FR (occurrence: FR)
  Receive Date: 20190212
  Receipt Date: 20190212
  Transmission Date: 20190417
  Serious: Yes (Hospitalization, Other)
  Sender: FDA-Public Use
  Company Number: FR-AUROBINDO-AUR-APL-2019-006747

PATIENT

DRUGS (4)
  1. SERESTA [Suspect]
     Active Substance: OXAZEPAM
     Indication: PRODUCT USED FOR UNKNOWN INDICATION
     Dosage: 20 DOSAGE FORM
     Route: 048
     Dates: start: 20190112, end: 20190112
  2. TRAMADOL. [Suspect]
     Active Substance: TRAMADOL
     Indication: PRODUCT USED FOR UNKNOWN INDICATION
     Dosage: 1 GRAM, ONCE A DAY
     Route: 048
     Dates: start: 20190112, end: 20190112
  3. MERCALM [Suspect]
     Active Substance: CAFFEINE\DIMENHYDRINATE
     Indication: PRODUCT USED FOR UNKNOWN INDICATION
     Dosage: 9 DOSAGE FORM
     Route: 048
     Dates: start: 20190112, end: 20190112
  4. PARACETAMOL [Suspect]
     Active Substance: ACETAMINOPHEN
     Indication: PRODUCT USED FOR UNKNOWN INDICATION
     Dosage: 7 GRAM TOTAL
     Route: 048
     Dates: start: 20190112, end: 20190112

REACTIONS (3)
  - Respiratory acidosis [Recovered/Resolved]
  - Coma [Recovered/Resolved]
  - Bradypnoea [Recovered/Resolved]

NARRATIVE: CASE EVENT DATE: 20190112
